FAERS Safety Report 4598291-X (Version None)
Quarter: 2005Q1

REPORT INFORMATION
  Report Type: 
  Country: None (occurrence: None)
  Receive Date: 20050301
  Receipt Date: 20050301
  Transmission Date: 20050727
  Serious: Yes (Hospitalization)
  Sender: FDA-Public Use
  Company Number: None

PATIENT
  Sex: Male

DRUGS (15)
  1. DOXEPIN HCL [Suspect]
     Indication: LICHEN PLANUS
     Dosage: 25-50 MG  HS ORAL
     Route: 048
     Dates: start: 20041005, end: 20041101
  2. APAP TAB [Concomitant]
  3. ASPIRIN [Concomitant]
  4. BACITRACIN [Concomitant]
  5. BUSPIRONE [Concomitant]
  6. CARVEDILOL [Concomitant]
  7. CITALOPRAM HYDROBROMIDE [Concomitant]
  8. FELODIPINE [Concomitant]
  9. HYDROXYZINE [Concomitant]
  10. ISOSORBIDE MONONITRATE [Concomitant]
  11. LORATADINE [Concomitant]
  12. RANITIDINE [Concomitant]
  13. SIMVASTATIN [Concomitant]
  14. TERAZOSIN [Concomitant]
  15. TRAZODONE HCL [Concomitant]

REACTIONS (1)
  - HALLUCINATION, VISUAL [None]
